FAERS Safety Report 4332704-3 (Version None)
Quarter: 2004Q2

REPORT INFORMATION
  Report Type: 
  Country: None (occurrence: None)
  Receive Date: 20040406
  Receipt Date: 20040317
  Transmission Date: 20050107
  Serious: Yes (Other)
  Sender: FDA-Public Use
  Company Number: 200412097US

PATIENT
  Sex: Male
  Weight: 86.3 kg

DRUGS (6)
  1. ALLEGRA [Suspect]
     Indication: HYPERSENSITIVITY
     Dosage: DOSE: UNK
     Dates: start: 19970501, end: 20000101
  2. ALLEGRA-D [Suspect]
     Indication: HYPERSENSITIVITY
     Dosage: DOSE: UNK
     Dates: start: 19970501, end: 20000101
  3. VICKS SPRAY NASAL [Concomitant]
     Indication: NASAL CONGESTION
     Dosage: DOSE: ONE SPRAY
     Dates: start: 19900101
  4. ALBUTEROL [Concomitant]
     Indication: ASTHMA
     Dosage: DOSE: PRN
     Dates: start: 19980101
  5. VERELAN PM [Concomitant]
     Indication: BLOOD PRESSURE
     Dates: start: 19970101
  6. TOPROL-XL [Concomitant]

REACTIONS (4)
  - DYSPNOEA [None]
  - NASOPHARYNGITIS [None]
  - PNEUMONIA [None]
  - RESPIRATORY DISORDER [None]
